FAERS Safety Report 7417984-X (Version None)
Quarter: 2011Q2

REPORT INFORMATION
  Report Type: 
  Country: None (occurrence: None)
  Receive Date: 20110415
  Receipt Date: 20110406
  Transmission Date: 20111010
  Serious: Yes (Other)
  Sender: FDA-Public Use
  Company Number: US-JNJFOC-20110403528

PATIENT
  Sex: Male
  Weight: 110.68 kg

DRUGS (8)
  1. LITHIUM [Concomitant]
     Route: 065
  2. CELEXA [Concomitant]
     Route: 065
  3. INVEGA SUSTENNA [Suspect]
     Indication: PSYCHOTIC DISORDER
     Route: 030
  4. DILANTIN [Concomitant]
     Route: 065
  5. LYRICA [Concomitant]
     Route: 065
  6. AMBIEN [Concomitant]
     Route: 065
  7. NEURONTIN [Concomitant]
     Route: 065
  8. ULTRAM [Concomitant]
     Route: 065

REACTIONS (1)
  - INJECTION SITE CELLULITIS [None]
